FAERS Safety Report 5962948 (Version 4)
Quarter: 2020Q2

REPORT INFORMATION
  Report Type: Spontaneous
  Country: FR (occurrence: FR)
  Receive Date: 20060118
  Receipt Date: 20200603
  Transmission Date: 20200714
  Serious: Yes (Hospitalization, Other)
  Sender: FDA-Public Use
  Company Number: FR-BRISTOL-MYERS SQUIBB COMPANY-13243613

PATIENT
  Age: 54 Year
  Sex: Male
  Weight: 78 kg

DRUGS (13)
  1. KARDEGIC [Concomitant]
     Active Substance: ASPIRIN DL-LYSINE
     Indication: PRODUCT USED FOR UNKNOWN INDICATION
     Route: 065
  2. REYATAZ [Suspect]
     Active Substance: ATAZANAVIR SULFATE
     Indication: ACQUIRED IMMUNODEFICIENCY SYNDROME
     Dosage: 150 MG, BID
     Route: 048
     Dates: start: 20050615
  3. ACETYLSALICYLIC ACID [Concomitant]
     Active Substance: ASPIRIN
     Indication: PRODUCT USED FOR UNKNOWN INDICATION
     Route: 065
  4. EPIVIR [Suspect]
     Active Substance: LAMIVUDINE
     Indication: ACQUIRED IMMUNODEFICIENCY SYNDROME
     Dosage: 150 MG, QD
     Route: 048
     Dates: start: 20050615
  5. ZIAGEN [Suspect]
     Active Substance: ABACAVIR SULFATE
     Indication: ACQUIRED IMMUNODEFICIENCY SYNDROME
     Dosage: 300 MG, BID
     Route: 048
     Dates: start: 20050615
  6. HUMULIN N [Concomitant]
     Active Substance: INSULIN HUMAN
     Indication: TYPE 1 DIABETES MELLITUS
     Route: 065
  7. ZYLORIC [Concomitant]
     Active Substance: ALLOPURINOL
     Indication: GOUT
     Dosage: 100 MG, UNK
     Route: 065
  8. OGAST [Concomitant]
     Active Substance: LANSOPRAZOLE
     Indication: PRODUCT USED FOR UNKNOWN INDICATION
     Route: 065
  9. NORVIR [Suspect]
     Active Substance: RITONAVIR
     Indication: ACQUIRED IMMUNODEFICIENCY SYNDROME
     Dosage: 1 DF, QD
     Route: 048
     Dates: start: 20050615
  10. COVERSYL [PERINDOPRIL ERBUMINE] [Suspect]
     Active Substance: PERINDOPRIL ERBUMINE
     Indication: PRODUCT USED FOR UNKNOWN INDICATION
     Dosage: 1 DF, QD
     Route: 048
  11. KAYEXALATE [Concomitant]
     Active Substance: SODIUM POLYSTYRENE SULFONATE
     Indication: PRODUCT USED FOR UNKNOWN INDICATION
     Route: 065
  12. PREVISCAN [PENTOXIFYLLINE] [Suspect]
     Active Substance: PENTOXIFYLLINE
     Indication: PRODUCT USED FOR UNKNOWN INDICATION
     Dosage: 20 MG, UNK
     Route: 048
     Dates: start: 20050615
  13. STILNOX [Concomitant]
     Active Substance: ZOLPIDEM TARTRATE
     Indication: PRODUCT USED FOR UNKNOWN INDICATION
     Route: 065

REACTIONS (2)
  - Retinal haemorrhage [Not Recovered/Not Resolved]
  - Xerosis [Not Recovered/Not Resolved]

NARRATIVE: CASE EVENT DATE: 20051206
